FAERS Safety Report 7434883-8 (Version None)
Quarter: 2011Q2

REPORT INFORMATION
  Report Type: 
  Country: None (occurrence: None)
  Receive Date: 20110425
  Receipt Date: 20110330
  Transmission Date: 20111010
  Serious: No
  Sender: FDA-Public Use
  Company Number: US-B.I. PHARMACEUTICALS,INC./RIDGEFIELD-2011-BP-09639BP

PATIENT
  Sex: Female

DRUGS (7)
  1. DILTIAZEM [Concomitant]
     Indication: HYPERTENSION
  2. CLONIDINE [Concomitant]
     Indication: HYPERTENSION
  3. SIMVASTATIN [Concomitant]
     Indication: CARDIAC DISORDER
  4. ASMANEX TWISTHALER [Concomitant]
     Dates: start: 20110201
  5. SPIRIVA [Suspect]
     Indication: CHRONIC OBSTRUCTIVE PULMONARY DISEASE
     Dosage: 18 MCG
     Route: 055
     Dates: start: 20110201
  6. FORADIL [Concomitant]
     Dates: start: 20110201
  7. METFORMIN [Concomitant]
     Indication: DIABETES MELLITUS

REACTIONS (4)
  - IRITIS [None]
  - EYE PAIN [None]
  - DRY MOUTH [None]
  - ORAL DISCOMFORT [None]
